FAERS Safety Report 20777862 (Version 1)
Quarter: 2022Q2

REPORT INFORMATION
  Report Type: Spontaneous
  Country: US (occurrence: None)
  Receive Date: 20220502
  Receipt Date: 20220502
  Transmission Date: 20220721
  Serious: Yes (Hospitalization)
  Sender: FDA-Public Use
  Company Number: None

PATIENT
  Sex: Male
  Weight: 90.26 kg

DRUGS (20)
  1. ABIRATERONE ACETATE [Suspect]
     Active Substance: ABIRATERONE ACETATE
     Indication: Prostate cancer
     Dosage: FREQUENCY : DAILY;?
     Route: 048
     Dates: start: 20220402
  2. NAPROXEN [Concomitant]
  3. PRIMIDONE [Concomitant]
  4. DOXAZOSIN [Concomitant]
  5. FINASTERIDE [Concomitant]
  6. LASIX [Concomitant]
  7. CARVEDILOL [Concomitant]
  8. JOINT HEALTH [Concomitant]
  9. SPIRONOLACTONE [Concomitant]
  10. DONEPEZIL [Concomitant]
  11. FISH OIL [Concomitant]
  12. ASPIRIN [Concomitant]
  13. VITAMIN B12 [Concomitant]
     Active Substance: CYANOCOBALAMIN
  14. VITAMIN D3 [Concomitant]
  15. PREDNISONE [Concomitant]
  16. ZOMETA [Concomitant]
  17. ZOFRAN [Concomitant]
  18. TRAMADOL [Concomitant]
  19. DAILY FIBER ORAL PACKET [Concomitant]
  20. IRON [Concomitant]

REACTIONS (1)
  - Hypertension [None]
